FAERS Safety Report 5186289-2 (Version None)
Quarter: 2006Q4

REPORT INFORMATION
  Report Type: 
  Country: None (occurrence: None)
  Receive Date: 20061213
  Receipt Date: 20060112
  Transmission Date: 20070319
  Serious: Yes (Other)
  Sender: FDA-Public Use
  Company Number: FR-GUERBET-20060135

PATIENT
  Sex: Female

DRUGS (1)
  1. DOTAREM: / MEGLUMINE GADOTERATE [Suspect]
     Indication: NUCLEAR MAGNETIC RESONANCE IMAGING

REACTIONS (4)
  - INFLAMMATION [None]
  - LEUKOCYTOSIS [None]
  - MYALGIA [None]
  - THERAPY NON-RESPONDER [None]
